FAERS Safety Report 8092983-6 (Version None)
Quarter: 2012Q1

REPORT INFORMATION
  Report Type: 
  Country: None (occurrence: None)
  Receive Date: 20120128
  Receipt Date: 20110921
  Transmission Date: 20120608
  Serious: Yes (Hospitalization)
  Sender: FDA-Public Use
  Company Number: US-ABBOTT-11P-163-0851636-00

PATIENT
  Sex: Male
  Weight: 93.524 kg

DRUGS (4)
  1. PREVACID [Concomitant]
     Indication: PRODUCT USED FOR UNKNOWN INDICATION
     Dosage: DAILY
     Route: 048
  2. HUMIRA [Suspect]
     Indication: CROHN'S DISEASE
     Dates: start: 20090101
  3. KLONOPIN [Concomitant]
     Indication: ANXIETY
     Dosage: DAILY, AS NEEDED
     Route: 048
  4. PRISTIQ [Concomitant]
     Indication: PRODUCT USED FOR UNKNOWN INDICATION
     Dosage: DAILY
     Route: 048

REACTIONS (2)
  - CROHN'S DISEASE [None]
  - WRONG TECHNIQUE IN DRUG USAGE PROCESS [None]
